FAERS Safety Report 17788105 (Version 2)
Quarter: 2022Q2

REPORT INFORMATION
  Report Type: Spontaneous
  Country: CA (occurrence: None)
  Receive Date: 20200515
  Receipt Date: 20220620
  Transmission Date: 20220720
  Serious: Yes (Hospitalization)
  Sender: FDA-Public Use
  Company Number: CA-ROCHE-2593325

PATIENT
  Age: 66 Year
  Sex: Female
  Weight: 80 kg

DRUGS (18)
  1. ACTEMRA [Suspect]
     Active Substance: TOCILIZUMAB
     Indication: Rheumatoid arthritis
     Route: 042
  2. FUROSEMIDE [Suspect]
     Active Substance: FUROSEMIDE
     Indication: Product used for unknown indication
     Route: 065
  3. PREGABALIN [Suspect]
     Active Substance: PREGABALIN
     Indication: Product used for unknown indication
     Route: 065
  4. AMLODIPINE BESYLATE [Suspect]
     Active Substance: AMLODIPINE BESYLATE
     Indication: Product used for unknown indication
     Dosage: THERAPY DURATION 61 DAYS
     Route: 048
  5. AMITRIPTYLINE [Suspect]
     Active Substance: AMITRIPTYLINE
     Indication: Arthralgia
     Dosage: THERAPY DURATION 61 DAYS
     Route: 065
  6. ACETAMINOPHEN [Concomitant]
     Active Substance: ACETAMINOPHEN
  7. CELEBREX [Concomitant]
     Active Substance: CELECOXIB
  8. FOLIC ACID [Concomitant]
     Active Substance: FOLIC ACID
  9. INDAPAMIDE [Concomitant]
     Active Substance: INDAPAMIDE
  10. METHOTREXATE [Concomitant]
     Active Substance: METHOTREXATE
     Route: 048
  11. OXYCODONE [Concomitant]
     Active Substance: OXYCODONE
  12. PERINDOPRIL [Concomitant]
     Active Substance: PERINDOPRIL
  13. PLAQUENIL [Concomitant]
     Active Substance: HYDROXYCHLOROQUINE SULFATE
  14. PREDNISONE [Concomitant]
     Active Substance: PREDNISONE
  15. PREGABALIN [Concomitant]
     Active Substance: PREGABALIN
  16. ROSUVASTATIN [Concomitant]
     Active Substance: ROSUVASTATIN
  17. VITAMIN D3 [Concomitant]
     Active Substance: CHOLECALCIFEROL
  18. HYDROXYCHLOROQUINE SULFATE [Concomitant]
     Active Substance: HYDROXYCHLOROQUINE SULFATE

REACTIONS (38)
  - Arthralgia [Not Recovered/Not Resolved]
  - Blood pressure systolic increased [Not Recovered/Not Resolved]
  - Cough [Not Recovered/Not Resolved]
  - Decreased appetite [Not Recovered/Not Resolved]
  - Disability assessment scale score increased [Not Recovered/Not Resolved]
  - Fatigue [Not Recovered/Not Resolved]
  - Hand fracture [Not Recovered/Not Resolved]
  - Herpes zoster [Not Recovered/Not Resolved]
  - Inflammation [Not Recovered/Not Resolved]
  - Influenza [Not Recovered/Not Resolved]
  - Joint effusion [Not Recovered/Not Resolved]
  - Joint swelling [Not Recovered/Not Resolved]
  - Limb injury [Not Recovered/Not Resolved]
  - Musculoskeletal stiffness [Not Recovered/Not Resolved]
  - Nail injury [Not Recovered/Not Resolved]
  - Nasopharyngitis [Not Recovered/Not Resolved]
  - Nocturia [Not Recovered/Not Resolved]
  - Oedema peripheral [Not Recovered/Not Resolved]
  - Oxygen saturation decreased [Not Recovered/Not Resolved]
  - Pain [Not Recovered/Not Resolved]
  - Pneumonia [Not Recovered/Not Resolved]
  - Poor dental condition [Not Recovered/Not Resolved]
  - Respiratory tract infection [Not Recovered/Not Resolved]
  - Sinusitis [Not Recovered/Not Resolved]
  - Weight decreased [Not Recovered/Not Resolved]
  - Weight increased [Not Recovered/Not Resolved]
  - Wound infection [Not Recovered/Not Resolved]
  - Drug intolerance [Not Recovered/Not Resolved]
  - Dry throat [Not Recovered/Not Resolved]
  - Cellulitis [Not Recovered/Not Resolved]
  - Dysphonia [Not Recovered/Not Resolved]
  - Blood pressure increased [Not Recovered/Not Resolved]
  - Oral pain [Not Recovered/Not Resolved]
  - Gangrene [Not Recovered/Not Resolved]
  - Dry mouth [Not Recovered/Not Resolved]
  - Sensory loss [Not Recovered/Not Resolved]
  - Angular cheilitis [Not Recovered/Not Resolved]
  - Off label use [Unknown]
